FAERS Safety Report 7529412-4 (Version None)
Quarter: 2011Q2

REPORT INFORMATION
  Report Type: 
  Country: None (occurrence: None)
  Receive Date: 20110607
  Receipt Date: 20110602
  Transmission Date: 20111010
  Serious: Yes (Life-Threatening, Other)
  Sender: FDA-Public Use
  Company Number: AU-ASTRAZENECA-2011SE34110

PATIENT
  Age: 27290 Day
  Sex: Female
  Weight: 75 kg

DRUGS (6)
  1. ASPIRIN [Suspect]
     Route: 065
     Dates: end: 20110412
  2. PLAVIX [Suspect]
     Route: 065
     Dates: start: 20110331, end: 20110412
  3. ATACAND [Suspect]
     Route: 048
     Dates: end: 20110412
  4. ESOMEPRAZOLE MAGNESIUM TRIHYDRATE [Concomitant]
  5. FLUOXETINE HYDROCHLORIDE [Concomitant]
  6. LIPITOR [Concomitant]

REACTIONS (7)
  - NAUSEA [None]
  - TROPONIN INCREASED [None]
  - CHEST PAIN [None]
  - URTICARIA [None]
  - LIP SWELLING [None]
  - ANAPHYLACTOID REACTION [None]
  - PRURITUS [None]
